FAERS Safety Report 9817609 (Version 1)
Quarter: 2013Q4

REPORT INFORMATION
  Report Type: Spontaneous
  Country: US (occurrence: None)
  Receive Date: 20131223
  Receipt Date: 20131223
  Transmission Date: 20140711
  Serious: No
  Sender: FDA-Public Use
  Company Number: 220317

PATIENT
  Age: 61 Year
  Sex: Female

DRUGS (4)
  1. PICATO GEL [Suspect]
     Indication: ACTINIC KERATOSIS
     Dosage: (FOR 3 DAYS), TOPICAL
     Route: 061
  2. ALENDRONATE (ALENDRONATE SODIUM) [Concomitant]
  3. ASA (ACETYLSALICYLIC ACID) [Concomitant]
  4. CALCIUM + VITAMIN D (CALCIUM D3 /01483701/) [Concomitant]

REACTIONS (8)
  - Application site erythema [None]
  - Application site irritation [None]
  - Application site exfoliation [None]
  - Application site vesicles [None]
  - Headache [None]
  - Drug administered at inappropriate site [None]
  - Drug administration error [None]
  - Incorrect dose administered [None]
